FAERS Safety Report 16535406 (Version 2)
Quarter: 2019Q3

REPORT INFORMATION
  Report Type: Spontaneous
  Country: US (occurrence: US)
  Receive Date: 20190705
  Receipt Date: 20190828
  Transmission Date: 20191004
  Serious: No
  Sender: FDA-Public Use
  Company Number: US-ASTRAZENECA-2019SE86761

PATIENT
  Age: 969 Month
  Sex: Male
  Weight: 99.8 kg

DRUGS (2)
  1. SYMBICORT [Suspect]
     Active Substance: BUDESONIDE\FORMOTEROL FUMARATE DIHYDRATE
     Indication: EMPHYSEMA
     Dosage: SYMBICORT 160/4.5 MCG FOR,TWO INHALATIONS, TWICE DAILY
     Route: 055
  2. SPIRIVA [Concomitant]
     Active Substance: TIOTROPIUM BROMIDE MONOHYDRATE
     Indication: RESPIRATION ABNORMAL
     Route: 055

REACTIONS (6)
  - Dependence on oxygen therapy [Not Recovered/Not Resolved]
  - Dyspnoea [Unknown]
  - Device issue [Unknown]
  - Respiration abnormal [Not Recovered/Not Resolved]
  - Intentional product misuse [Not Recovered/Not Resolved]
  - Product dose omission [Not Recovered/Not Resolved]

NARRATIVE: CASE EVENT DATE: 201904
